FAERS Safety Report 9482233 (Version 1)
Quarter: 2013Q3

REPORT INFORMATION
  Report Type: Spontaneous
  Country: CO (occurrence: CO)
  Receive Date: 20130828
  Receipt Date: 20130828
  Transmission Date: 20140515
  Serious: Yes (Hospitalization)
  Sender: FDA-Public Use
  Company Number: CO-JNJFOC-20130812039

PATIENT
  Age: 4 Year
  Sex: Female

DRUGS (1)
  1. TOPAMAC [Suspect]
     Indication: EPILEPSY
     Route: 048
     Dates: start: 20130305, end: 20130807

REACTIONS (1)
  - Post procedural infection [Unknown]
